FAERS Safety Report 9511562 (Version 1)
Quarter: 2013Q1

REPORT INFORMATION
  Report Type: Spontaneous
  Country: US (occurrence: None)
  Receive Date: 20130305
  Receipt Date: 20130305
  Transmission Date: 20140127
  Serious: No
  Sender: FDA-Public Use
  Company Number: 163-21880-12111736

PATIENT
  Age: 73 Year
  Sex: Female

DRUGS (1)
  1. REVLIMID [Suspect]
     Indication: MYELODYSPLASTIC SYNDROME
     Dosage: 10MG, 21 IN 28D, PO
     Route: 048
     Dates: start: 20121010, end: 2012

REACTIONS (5)
  - Stomatitis [None]
  - Oral discomfort [None]
  - Rash [None]
  - Pruritus generalised [None]
  - Fatigue [None]
